FAERS Safety Report 22090870 (Version 3)
Quarter: 2023Q1

REPORT INFORMATION
  Report Type: Spontaneous
  Country: GB (occurrence: GB)
  Receive Date: 20230314
  Receipt Date: 20230321
  Transmission Date: 20230418
  Serious: No
  Sender: FDA-Public Use
  Company Number: GB-TAKEDA-2023TUS007778

PATIENT
  Age: 19 Year
  Sex: Male

DRUGS (8)
  1. DOXORUBICIN [Suspect]
     Active Substance: DOXORUBICIN
     Indication: Anaplastic large cell lymphoma T- and null-cell types recurrent
     Dosage: UNK (START DATE: DEC-2021)
     Route: 050
     Dates: end: 20230201
  2. CYCLOPHOSPHAMIDE [Suspect]
     Active Substance: CYCLOPHOSPHAMIDE
     Indication: Anaplastic large cell lymphoma T- and null-cell types recurrent
     Dosage: UNK, (START DATE: DEC-2021)
     Route: 050
     Dates: end: 20230201
  3. ADCETRIS [Suspect]
     Active Substance: BRENTUXIMAB VEDOTIN
     Indication: Anaplastic large cell lymphoma T- and null-cell types recurrent
     Dosage: UNK (START DATE: DEC-2021)
     Route: 050
     Dates: end: 20230201
  4. BRIGATINIB [Suspect]
     Active Substance: BRIGATINIB
     Indication: Anaplastic large cell lymphoma T- and null-cell types recurrent
     Dosage: 180 MILLIGRAM
     Route: 050
     Dates: start: 20230201
  5. BRIGATINIB [Suspect]
     Active Substance: BRIGATINIB
     Dosage: 60 MILLIGRAM
     Route: 050
     Dates: start: 20230118
  6. BRIGATINIB [Suspect]
     Active Substance: BRIGATINIB
     Dosage: 180 MILLIGRAM
     Route: 050
     Dates: start: 20230104, end: 20230111
  7. BRIGATINIB [Suspect]
     Active Substance: BRIGATINIB
     Dosage: 90 MILLIGRAM
     Route: 050
     Dates: start: 20221229
  8. PREDNISOLONE [Suspect]
     Active Substance: PREDNISOLONE
     Indication: Anaplastic large cell lymphoma T- and null-cell types recurrent
     Dosage: UNK (START DATE: DEC-2021)
     Route: 050
     Dates: end: 20230201

REACTIONS (2)
  - Anaplastic large-cell lymphoma [Not Recovered/Not Resolved]
  - Alanine aminotransferase increased [Recovered/Resolved]
